FAERS Safety Report 23219638 (Version 2)
Quarter: 2023Q4

REPORT INFORMATION
  Report Type: Spontaneous
  Country: ES (occurrence: None)
  Receive Date: 20231122
  Receipt Date: 20231212
  Transmission Date: 20240110
  Serious: Yes (Death, Hospitalization, Other)
  Sender: FDA-Public Use
  Company Number: 2023A262482

PATIENT
  Age: 59 Year
  Sex: Female

DRUGS (10)
  1. BENRALIZUMAB [Suspect]
     Active Substance: BENRALIZUMAB
     Route: 058
     Dates: start: 201904
  2. SIMVASTATIN [Concomitant]
     Active Substance: SIMVASTATIN
  3. DENOSUMAB [Concomitant]
     Active Substance: DENOSUMAB
  4. MONTELUKAST [Concomitant]
     Active Substance: MONTELUKAST SODIUM
  5. FLUTICASONE [Concomitant]
     Active Substance: FLUTICASONE
     Route: 055
  6. PREDNISONE [Concomitant]
     Active Substance: PREDNISONE
     Route: 055
  7. GLYCOPYRRONIUM/FORMOTEROL/BECLOMETASONE [Concomitant]
  8. ACETYLCYSTEINE [Concomitant]
     Active Substance: ACETYLCYSTEINE
  9. OMEPRAZOLE [Concomitant]
     Active Substance: OMEPRAZOLE
  10. VITAMIN D [Concomitant]
     Active Substance: VITAMIN D NOS

REACTIONS (3)
  - Lung neoplasm malignant [Fatal]
  - Respiratory distress [Fatal]
  - Condition aggravated [Unknown]
